FAERS Safety Report 4289748-X (Version None)
Quarter: 2004Q1

REPORT INFORMATION
  Report Type: 
  Country: None (occurrence: None)
  Receive Date: 20040210
  Receipt Date: 20030912
  Transmission Date: 20041129
  Serious: No
  Sender: FDA-Public Use
  Company Number: US-GLAXOSMITHKLINE-A0425695A

PATIENT
  Age: 80 Year
  Sex: Female
  Weight: 47.3 kg

DRUGS (3)
  1. SEREVENT [Suspect]
     Indication: EMPHYSEMA
     Route: 055
     Dates: start: 20030903
  2. PREDNISONE [Concomitant]
  3. BECONASE [Concomitant]
     Route: 045

REACTIONS (3)
  - DRUG INEFFECTIVE [None]
  - DYSPNOEA [None]
  - PHARMACEUTICAL PRODUCT COMPLAINT [None]
